FAERS Safety Report 4696647-8 (Version None)
Quarter: 2005Q2

REPORT INFORMATION
  Report Type: 
  Country: None (occurrence: None)
  Receive Date: 20050616
  Receipt Date: 20050503
  Transmission Date: 20051028
  Serious: No
  Sender: FDA-Public Use
  Company Number: BDI-007154

PATIENT
  Sex: Male

DRUGS (4)
  1. MULTIHANCE [Suspect]
     Indication: BACK PAIN
     Dosage: 15 ML IV
     Route: 042
     Dates: start: 20050428, end: 20050428
  2. MULTIHANCE [Suspect]
     Indication: NUCLEAR MAGNETIC RESONANCE IMAGING
     Dosage: 15 ML IV
     Route: 042
     Dates: start: 20050428, end: 20050428
  3. PAIN MEDICATION [Concomitant]
  4. ALCOHOL [Concomitant]

REACTIONS (1)
  - NAUSEA [None]
